FAERS Safety Report 4946199-X (Version None)
Quarter: 2006Q1

REPORT INFORMATION
  Report Type: 
  Country: None (occurrence: None)
  Receive Date: 20060118
  Receipt Date: 20050503
  Transmission Date: 20060701
  Serious: Yes (Other)
  Sender: FDA-Public Use
  Company Number: US-JNJFOC-20050401991

PATIENT
  Sex: Female

DRUGS (1)
  1. DOXIL [Suspect]
     Indication: BREAST CANCER METASTATIC
     Dosage: 80 MG, INTRAVENOUS
     Route: 042
     Dates: start: 20050407

REACTIONS (1)
  - INFUSION RELATED REACTION [None]
